FAERS Safety Report 7753551-6 (Version None)
Quarter: 2011Q3

REPORT INFORMATION
  Report Type: 
  Country: None (occurrence: None)
  Receive Date: 20110915
  Receipt Date: 20110913
  Transmission Date: 20111222
  Serious: Yes (Hospitalization)
  Sender: FDA-Public Use
  Company Number: US-GLAXOSMITHKLINE-A0699120A

PATIENT
  Age: 41 Year
  Sex: Male
  Weight: 113.6 kg

DRUGS (11)
  1. LIPITOR [Concomitant]
  2. NITROSTAT [Concomitant]
  3. ASPIRIN [Concomitant]
     Dosage: 325MG PER DAY
     Route: 048
  4. AVANDIA [Suspect]
     Indication: DIABETES MELLITUS
     Dosage: 4MG TWICE PER DAY
     Route: 048
     Dates: start: 20000403, end: 20070305
  5. PLAVIX [Concomitant]
     Dosage: 75MG PER DAY
     Route: 048
  6. TOPROL-XL [Concomitant]
     Dosage: 25MG PER DAY
     Route: 048
  7. ATENOLOL [Concomitant]
  8. ACTOS [Concomitant]
  9. WELLBUTRIN [Concomitant]
  10. LEXAPRO [Concomitant]
  11. LISINOPRIL [Concomitant]
     Dosage: 20MG PER DAY
     Route: 048

REACTIONS (3)
  - ACUTE MYOCARDIAL INFARCTION [None]
  - PAIN [None]
  - ACUTE CORONARY SYNDROME [None]
